FAERS Safety Report 19036290 (Version 2)
Quarter: 2021Q1

REPORT INFORMATION
  Report Type: Spontaneous
  Country: AR (occurrence: AR)
  Receive Date: 20210322
  Receipt Date: 20210325
  Transmission Date: 20210420
  Serious: Yes (Hospitalization, Disabling, Other)
  Sender: FDA-Public Use
  Company Number: AR-AMGEN-ARGSP2020176250

PATIENT
  Age: 80 Year
  Sex: Male

DRUGS (4)
  1. ENBREL [Suspect]
     Active Substance: ETANERCEPT
     Indication: PSORIASIS
     Dosage: 50 MILLIGRAM, QWK
     Route: 065
     Dates: start: 20110722
  2. PAXON [LOSARTAN POTASSIUM] [Concomitant]
     Indication: HYPERTENSION
     Dosage: 1 DOSAGE FORM (1 PILL/DAY 50)
     Dates: start: 2019
  3. TRAPAX [Concomitant]
     Active Substance: LORAZEPAM
     Indication: ANXIETY
     Dosage: 1 DOSAGE FORM, QD (1 PILL/DAY EVERY NIGHT)
     Dates: start: 1991
  4. ENBREL [Suspect]
     Active Substance: ETANERCEPT
     Dosage: 50 MILLIGRAM, QWK
     Route: 065
     Dates: start: 20141004, end: 20210208

REACTIONS (10)
  - Hypoacusis [Not Recovered/Not Resolved]
  - Limb discomfort [Unknown]
  - Prostate cancer [Unknown]
  - Malaise [Unknown]
  - Tinnitus [Unknown]
  - Osteoarthritis [Unknown]
  - Memory impairment [Unknown]
  - COVID-19 [Unknown]
  - Pneumonia [Unknown]
  - Head discomfort [Unknown]

NARRATIVE: CASE EVENT DATE: 20210208
